FAERS Safety Report 23612731 (Version 1)
Quarter: 2024Q1

REPORT INFORMATION
  Report Type: Spontaneous
  Country: US (occurrence: US)
  Receive Date: 20240308
  Receipt Date: 20240308
  Transmission Date: 20240410
  Serious: Yes (Other)
  Sender: FDA-Public Use
  Company Number: US-SUNOVION-2024SUN000177

PATIENT

DRUGS (3)
  1. APTIOM [Suspect]
     Active Substance: ESLICARBAZEPINE ACETATE
     Indication: Seizure
     Dosage: 600 MG, QD
     Route: 048
     Dates: start: 2020
  2. APTIOM [Suspect]
     Active Substance: ESLICARBAZEPINE ACETATE
     Dosage: 800 MG, QD
     Route: 048
  3. APTIOM [Suspect]
     Active Substance: ESLICARBAZEPINE ACETATE
     Dosage: 1600 MG, HS
     Route: 048

REACTIONS (8)
  - Seizure [Recovering/Resolving]
  - Stress [Unknown]
  - Weight decreased [Unknown]
  - Therapeutic product effect incomplete [Unknown]
  - Amnesia [Unknown]
  - Confusional state [Unknown]
  - Therapy interrupted [Unknown]
  - Maternal exposure during pregnancy [Unknown]
